FAERS Safety Report 5335570-2 (Version None)
Quarter: 2007Q2

REPORT INFORMATION
  Report Type: 
  Country: None (occurrence: None)
  Receive Date: 20070522
  Receipt Date: 20070305
  Transmission Date: 20071010
  Serious: Yes (Hospitalization)
  Sender: FDA-Public Use
  Company Number: 207693

PATIENT
  Age: 47 Year
  Sex: Female

DRUGS (9)
  1. AVONEX [Suspect]
     Indication: MULTIPLE SCLEROSIS
     Dosage: 30 UG;QW;IM
     Route: 030
     Dates: start: 20040428
  2. TYLENOL [Concomitant]
  3. ZOCOR [Concomitant]
  4. NORVASC [Concomitant]
  5. HYDROCHLOROTHIAZIDE [Concomitant]
  6. POTASSIUM ACETATE [Concomitant]
  7. EFFEXOR [Concomitant]
  8. NEXIUM [Concomitant]
  9. PREMARIN [Concomitant]

REACTIONS (5)
  - BLOOD POTASSIUM DECREASED [None]
  - HEPATIC ENZYME INCREASED [None]
  - NAUSEA [None]
  - PAIN [None]
  - VOMITING [None]
